FAERS Safety Report 8950608 (Version 1)
Quarter: 2012Q4

REPORT INFORMATION
  Report Type: Spontaneous
  Country: US (occurrence: None)
  Receive Date: 20121204
  Receipt Date: 20121204
  Transmission Date: 20130627
  Serious: No
  Sender: FDA-Public Use
  Company Number: None

PATIENT
  Age: 50 Year
  Sex: Female
  Weight: 58.97 kg

DRUGS (1)
  1. DIUREX ULTRA [Suspect]
     Indication: FLUID RETENTION
     Dosage: 2 tablets every 4 hrs.
     Route: 048
     Dates: start: 20120815, end: 20120914

REACTIONS (2)
  - Wrong drug administered [None]
  - Counterfeit drug administered [None]
